FAERS Safety Report 8117929-3 (Version None)
Quarter: 2012Q1

REPORT INFORMATION
  Report Type: 
  Country: None (occurrence: None)
  Receive Date: 20120202
  Receipt Date: 20120131
  Transmission Date: 20120608
  Serious: Yes (Other)
  Sender: FDA-Public Use
  Company Number: ADR-2012-00191

PATIENT
  Sex: Male

DRUGS (3)
  1. ANTIBIOTICS [Concomitant]
  2. LIORESAL [Suspect]
     Indication: MUSCLE SPASTICITY
     Dosage: 750 MCG/DAY;
  3. LIORESAL [Suspect]
     Indication: CEREBRAL PALSY
     Dosage: 750 MCG/DAY;

REACTIONS (7)
  - SUTURE RUPTURE [None]
  - FALL [None]
  - IMPLANT SITE INFECTION [None]
  - IMPLANT SITE EFFUSION [None]
  - INCISION SITE ERYTHEMA [None]
  - INCISION SITE COMPLICATION [None]
  - SWELLING [None]
